FAERS Safety Report 5023671-8 (Version None)
Quarter: 2006Q2

REPORT INFORMATION
  Report Type: 
  Country: None (occurrence: None)
  Receive Date: 20060606
  Receipt Date: 20060127
  Transmission Date: 20061013
  Serious: Yes (Hospitalization)
  Sender: FDA-Public Use
  Company Number: 225675

PATIENT
  Age: 42 Year
  Sex: Female

DRUGS (3)
  1. MABTHERA                 (RITUXIMAB) CONC FOR SOLUTION FOR INFUSION [Suspect]
     Indication: NON-HODGKIN'S LYMPHOMA
     Dosage: 1375 MG/M2, INTRAVENOUS
     Route: 042
     Dates: start: 20050609, end: 20051029
  2. CYCLOPHOSPHAMIDE [Suspect]
     Indication: NON-HODGKIN'S LYMPHOMA
     Dosage: 1000 MG/M2, INTRAVENOUS
     Route: 042
     Dates: start: 20050607, end: 20051027
  3. FLUDARABINE [Suspect]
     Indication: NON-HODGKIN'S LYMPHOMA
     Dosage: 75 MG/M2, INTRAVENOUS
     Route: 042
     Dates: start: 20050627, end: 20051027

REACTIONS (1)
  - AGRANULOCYTOSIS [None]
